FAERS Safety Report 4990256-9 (Version None)
Quarter: 2006Q2

REPORT INFORMATION
  Report Type: 
  Country: None (occurrence: None)
  Receive Date: 20060503
  Receipt Date: 20060411
  Transmission Date: 20061013
  Serious: Yes (Other)
  Sender: FDA-Public Use
  Company Number: US-GLAXOSMITHKLINE-A0601403A

PATIENT
  Sex: Female

DRUGS (3)
  1. ADVAIR DISKUS 100/50 [Suspect]
     Indication: ASTHMA
     Dosage: 1BLS TWICE PER DAY
     Route: 055
  2. ACTONEL [Concomitant]
  3. TYLENOL (CAPLET) [Concomitant]

REACTIONS (12)
  - ABDOMINAL DISTENSION [None]
  - ASTHMA [None]
  - BACK PAIN [None]
  - DRY SKIN [None]
  - DYSPHONIA [None]
  - FRACTURE [None]
  - OEDEMA PERIPHERAL [None]
  - PRURITUS [None]
  - RASH [None]
  - READING DISORDER [None]
  - URTICARIA [None]
  - VISION BLURRED [None]
